FAERS Safety Report 7595575-8 (Version None)
Quarter: 2011Q3

REPORT INFORMATION
  Report Type: 
  Country: None (occurrence: None)
  Receive Date: 20110707
  Receipt Date: 20110629
  Transmission Date: 20111222
  Serious: Yes (Death)
  Sender: FDA-Public Use
  Company Number: US-GLAXOSMITHKLINE-A0933588A

PATIENT
  Age: 78 Year
  Sex: Female

DRUGS (4)
  1. TRANSFUSION [Concomitant]
     Indication: IDIOPATHIC THROMBOCYTOPENIC PURPURA
  2. IMMUNE GLOBULIN INTRAVENOUS (HUMAN) [Concomitant]
     Indication: IDIOPATHIC THROMBOCYTOPENIC PURPURA
  3. ROMIPLOSTIM [Concomitant]
     Indication: IDIOPATHIC THROMBOCYTOPENIC PURPURA
     Dates: start: 20101104, end: 20110103
  4. PROMACTA [Suspect]
     Indication: IDIOPATHIC THROMBOCYTOPENIC PURPURA
     Dosage: 75MG PER DAY
     Dates: start: 20110110, end: 20110207

REACTIONS (2)
  - ACUTE MYELOID LEUKAEMIA [None]
  - DRUG INEFFECTIVE [None]
